FAERS Safety Report 12400271 (Version 1)
Quarter: 2016Q2

REPORT INFORMATION
  Report Type: Spontaneous
  Country: US (occurrence: None)
  Receive Date: 20160524
  Receipt Date: 20160524
  Transmission Date: 20160815
  Serious: No
  Sender: FDA-Public Use
  Company Number: None

PATIENT
  Age: 57 Year
  Sex: Female
  Weight: 90.72 kg

DRUGS (8)
  1. DICLOFENAC [Suspect]
     Active Substance: DICLOFENAC
     Indication: KNEE ARTHROPLASTY
     Route: 048
  2. HRT PATCHES (EVOREL) [Concomitant]
  3. BETAHISTINE [Concomitant]
     Active Substance: BETAHISTINE
  4. DIFLUNISAL 500MG [Suspect]
     Active Substance: DIFLUNISAL
     Indication: PLANTAR FASCIITIS
     Route: 048
     Dates: start: 20160512, end: 20160514
  5. STARFLOWER OIL [Concomitant]
     Active Substance: HERBALS
  6. FISH OIL [Concomitant]
     Active Substance: FISH OIL
  7. IRON SUPPLEMENT [Concomitant]
     Active Substance: IRON
  8. ASPIRIN. [Concomitant]
     Active Substance: ASPIRIN

REACTIONS (10)
  - Fatigue [None]
  - Somnolence [None]
  - Feeling abnormal [None]
  - Heart rate increased [None]
  - Myalgia [None]
  - Malaise [None]
  - Arthralgia [None]
  - Headache [None]
  - Pain [None]
  - Pollakiuria [None]

NARRATIVE: CASE EVENT DATE: 20160514
